FAERS Safety Report 8140888-4 (Version None)
Quarter: 2012Q1

REPORT INFORMATION
  Report Type: 
  Country: None (occurrence: None)
  Receive Date: 20120214
  Receipt Date: 20120214
  Transmission Date: 20120608
  Serious: Yes (Hospitalization)
  Sender: FDA-Public Use
  Company Number: None

PATIENT
  Sex: Male
  Weight: 78 kg

DRUGS (1)
  1. DARBEPOETIN [Suspect]
     Indication: SYNCOPE
     Dates: start: 20120206

REACTIONS (1)
  - ACUTE MYOCARDIAL INFARCTION [None]
